FAERS Safety Report 7874707-8 (Version None)
Quarter: 2011Q4

REPORT INFORMATION
  Report Type: 
  Country: None (occurrence: None)
  Receive Date: 20111031
  Receipt Date: 20111019
  Transmission Date: 20120403
  Serious: Yes (Hospitalization)
  Sender: FDA-Public Use
  Company Number: FR-JNJFOC-20100704556

PATIENT
  Sex: Female
  Weight: 46.5 kg

DRUGS (6)
  1. OMEPRAZOLE [Concomitant]
  2. INFLIXIMAB [Suspect]
     Indication: CROHN'S DISEASE
     Route: 042
     Dates: start: 20080314, end: 20091027
  3. HUMIRA [Concomitant]
     Indication: CROHN'S DISEASE
     Dates: start: 20091211
  4. HUMIRA [Concomitant]
     Dates: start: 20100217
  5. HUMIRA [Concomitant]
     Dates: start: 20100818
  6. BUDESONIDE [Concomitant]

REACTIONS (3)
  - CROHN'S DISEASE [None]
  - DISEASE PROGRESSION [None]
  - TREATMENT NONCOMPLIANCE [None]
